FAERS Safety Report 10245720 (Version 1)
Quarter: 2014Q2

REPORT INFORMATION
  Report Type: Spontaneous
  Country: US (occurrence: US)
  Receive Date: 20140619
  Receipt Date: 20140619
  Transmission Date: 20141212
  Serious: Yes (Other)
  Sender: FDA-Public Use
  Company Number: US-AMGEN-USASP2014045195

PATIENT
  Sex: 0

DRUGS (4)
  1. XGEVA [Suspect]
     Indication: PRODUCT USED FOR UNKNOWN INDICATION
     Dosage: UNK
     Route: 065
  2. PROVENGE [Concomitant]
  3. DES                                /00063501/ [Concomitant]
  4. LUPRON [Concomitant]

REACTIONS (1)
  - Metastases to bone [Unknown]
